FAERS Safety Report 24288042 (Version 3)
Quarter: 2025Q1

REPORT INFORMATION
  Report Type: Report from Study
  Country: US (occurrence: US)
  Receive Date: 20240905
  Receipt Date: 20250219
  Transmission Date: 20250409
  Serious: No
  Sender: SUNOVION
  Company Number: US-SUMITOMO PHARMA SWITZERLAND GMBH-2024SPA001339

PATIENT

DRUGS (8)
  1. ORGOVYX [Suspect]
     Active Substance: RELUGOLIX
     Indication: Prostate cancer
     Dosage: 360 MG, SINGLE
     Route: 048
     Dates: start: 202405, end: 202405
  2. ORGOVYX [Suspect]
     Active Substance: RELUGOLIX
     Dosage: 120 MG, QD
     Route: 048
     Dates: start: 202405
  3. AMLODIPINE BESYLATE [Concomitant]
     Active Substance: AMLODIPINE BESYLATE
     Route: 065
  4. VITAMINS [Concomitant]
     Active Substance: VITAMINS
     Route: 065
  5. FERROUS SULFATE [Concomitant]
     Active Substance: FERROUS SULFATE
     Route: 065
  6. PREDNISONE [Concomitant]
     Active Substance: PREDNISONE
     Route: 065
  7. TAMSULOSIN [Concomitant]
     Active Substance: TAMSULOSIN
     Route: 065
  8. ZYTIGA [Concomitant]
     Active Substance: ABIRATERONE ACETATE
     Route: 065

REACTIONS (6)
  - Weight decreased [Unknown]
  - Decreased appetite [Unknown]
  - Vomiting [Unknown]
  - Liver function test increased [Unknown]
  - Nasopharyngitis [Unknown]
  - Fatigue [Unknown]
